FAERS Safety Report 24868789 (Version 1)
Quarter: 2025Q1

REPORT INFORMATION
  Report Type: Spontaneous
  Country: US (occurrence: US)
  Receive Date: 20250121
  Receipt Date: 20250121
  Transmission Date: 20250409
  Serious: Yes (Other)
  Sender: COOPERSURGICAL
  Company Number: US-COOPERSURGICAL, INC.-2025CPS000151

PATIENT
  Age: 26 Year
  Sex: Female
  Weight: 65.76 kg

DRUGS (1)
  1. PARAGARD T 380A [Suspect]
     Active Substance: COPPER
     Indication: Contraception
     Route: 015
     Dates: start: 20100101

REACTIONS (37)
  - Reproductive complication associated with device [Unknown]
  - Cervix operation [Recovered/Resolved]
  - Abortion [Recovered/Resolved]
  - Abortion spontaneous [Recovered/Resolved]
  - Immunodeficiency [Not Recovered/Not Resolved]
  - Device breakage [Recovered/Resolved]
  - Foreign body in reproductive tract [Recovered/Resolved]
  - Complication of device removal [Recovered/Resolved]
  - Embedded device [Recovered/Resolved]
  - Pregnancy with contraceptive device [Recovered/Resolved]
  - Drug ineffective [Unknown]
  - Uterine perforation [Recovered/Resolved]
  - Migraine [Not Recovered/Not Resolved]
  - Depression [Not Recovered/Not Resolved]
  - Post-traumatic stress disorder [Not Recovered/Not Resolved]
  - Anxiety [Not Recovered/Not Resolved]
  - Premenstrual dysphoric disorder [Unknown]
  - Uterine scar [Not Recovered/Not Resolved]
  - Skin disorder [Unknown]
  - Subcutaneous abscess [Unknown]
  - Mental disorder [Unknown]
  - Chronic disease [Unknown]
  - Procedural pain [Unknown]
  - Skin infection [Unknown]
  - Rash [Unknown]
  - Infection [Unknown]
  - Hypersensitivity [Not Recovered/Not Resolved]
  - Pain [Unknown]
  - Muscle spasms [Unknown]
  - Device dislocation [Recovered/Resolved]
  - Pyrexia [Recovered/Resolved]
  - Abdominal distension [Unknown]
  - Dyspareunia [Recovered/Resolved]
  - Vaginal infection [Recovered/Resolved]
  - Allergy to metals [Not Recovered/Not Resolved]
  - Heavy menstrual bleeding [Recovered/Resolved]
  - Discomfort [Unknown]

NARRATIVE: CASE EVENT DATE: 20110101
